FAERS Safety Report 10173297 (Version 1)
Quarter: 2014Q2

REPORT INFORMATION
  Report Type: Report from Study
  Country: BR (occurrence: BR)
  Receive Date: 20140515
  Receipt Date: 20140515
  Transmission Date: 20141212
  Serious: Yes (Other)
  Sender: FDA-Public Use
  Company Number: BR-BAXTER-2014BAX023527

PATIENT
  Age: 7 Year
  Sex: Male

DRUGS (4)
  1. FEIBA [Suspect]
     Indication: HAEMOPHILIA
     Route: 065
     Dates: start: 20131129
  2. FEIBA [Suspect]
     Indication: TRAUMATIC HAEMORRHAGE
     Route: 065
     Dates: start: 20140102
  3. FEIBA [Suspect]
     Indication: HAEMARTHROSIS
     Route: 065
     Dates: start: 20140227
  4. FEIBA [Suspect]
     Route: 065
     Dates: start: 20140418

REACTIONS (1)
  - Drug ineffective [Unknown]
